FAERS Safety Report 7488877-7 (Version None)
Quarter: 2011Q2

REPORT INFORMATION
  Report Type: 
  Country: None (occurrence: None)
  Receive Date: 20110518
  Receipt Date: 20110513
  Transmission Date: 20111010
  Serious: Yes (Death, Hospitalization)
  Sender: FDA-Public Use
  Company Number: PHHY2011TR41170

PATIENT
  Age: 11 Year
  Sex: Male

DRUGS (3)
  1. PREDNISOLONE [Suspect]
     Indication: CROHN'S DISEASE
  2. AZATHIOPRINE [Suspect]
     Indication: CROHN'S DISEASE
  3. MESALAMINE [Suspect]
     Indication: CROHN'S DISEASE

REACTIONS (13)
  - HAEMATOCHEZIA [None]
  - VOMITING [None]
  - DIARRHOEA HAEMORRHAGIC [None]
  - FATIGUE [None]
  - PANCYTOPENIA [None]
  - ABDOMINAL PAIN [None]
  - WEIGHT DECREASED [None]
  - PALLOR [None]
  - HEPATOSPLENOMEGALY [None]
  - TENDERNESS [None]
  - PYREXIA [None]
  - CACHEXIA [None]
  - HISTIOCYTOSIS HAEMATOPHAGIC [None]
